FAERS Safety Report 7982350-5 (Version None)
Quarter: 2011Q4

REPORT INFORMATION
  Report Type: 
  Country: None (occurrence: None)
  Receive Date: 20111215
  Receipt Date: 20111202
  Transmission Date: 20120403
  Serious: Yes (Hospitalization, Other)
  Sender: FDA-Public Use
  Company Number: PHFR2010GB05303

PATIENT
  Sex: Male

DRUGS (2)
  1. CLOZARIL [Suspect]
     Indication: SCHIZOPHRENIA
     Route: 048
     Dates: start: 20100823, end: 20101105
  2. CLOZARIL [Suspect]
     Dosage: 450 MG
     Route: 048
     Dates: start: 20100901, end: 20101101

REACTIONS (6)
  - WHITE BLOOD CELL COUNT DECREASED [None]
  - PHARYNGITIS [None]
  - PYREXIA [None]
  - NEUTROPHIL COUNT DECREASED [None]
  - AGRANULOCYTOSIS [None]
  - WHITE BLOOD CELL COUNT INCREASED [None]
